FAERS Safety Report 6287532-9 (Version None)
Quarter: 2009Q3

REPORT INFORMATION
  Report Type: 
  Country: None (occurrence: None)
  Receive Date: 20090727
  Receipt Date: 20090716
  Transmission Date: 20100115
  Serious: Yes (Hospitalization)
  Sender: FDA-Public Use
  Company Number: 09-001152

PATIENT
  Age: 69 Year
  Sex: Female

DRUGS (7)
  1. PHENAZOPYRIDINE HCL TAB [Suspect]
     Indication: URINARY TRACT PAIN
     Dosage: 100 MG TID
  2. SULFAMETHOXAZOLE AND TRIMETHOPRIM [Concomitant]
  3. SIMVASTATIN [Concomitant]
  4. LISINOPRIL [Concomitant]
  5. TRAZODONE HCL [Concomitant]
  6. ESTROGEN NOS (ESTROGEN NOS) [Concomitant]
  7. PROGESTERONE [Concomitant]

REACTIONS (2)
  - CYANOSIS [None]
  - SULPHAEMOGLOBINAEMIA [None]
